FAERS Safety Report 25133585 (Version 1)
Quarter: 2025Q1

REPORT INFORMATION
  Report Type: Report from Study
  Country: CA (occurrence: CA)
  Receive Date: 20250328
  Receipt Date: 20250328
  Transmission Date: 20250409
  Serious: Yes (Other)
  Sender: TAKEDA
  Company Number: CA-TAKEDA-2025TUS031112

PATIENT
  Sex: Male
  Weight: 105 kg

DRUGS (5)
  1. VEDOLIZUMAB [Suspect]
     Active Substance: VEDOLIZUMAB
     Indication: Colitis ulcerative
  2. VEDOLIZUMAB [Suspect]
     Active Substance: VEDOLIZUMAB
     Indication: Colitis ulcerative
     Dosage: 108 MILLIGRAM, Q2WEEKS
     Dates: start: 20250324
  3. HYRIMOZ [Concomitant]
     Active Substance: ADALIMUMAB-ADAZ
  4. MESALAMINE [Concomitant]
     Active Substance: MESALAMINE
  5. CITALOPRAM [Concomitant]
     Active Substance: CITALOPRAM

REACTIONS (1)
  - Colitis ulcerative [Unknown]
